FAERS Safety Report 18961141 (Version 1)
Quarter: 2021Q1

REPORT INFORMATION
  Report Type: Spontaneous
  Country: IR (occurrence: IR)
  Receive Date: 20210302
  Receipt Date: 20210302
  Transmission Date: 20210420
  Serious: Yes (Hospitalization, Other)
  Sender: FDA-Public Use
  Company Number: IR-INSUD PHARMA-2102IR00202

PATIENT

DRUGS (1)
  1. TESTOSTERONE. [Suspect]
     Active Substance: TESTOSTERONE
     Indication: MUSCLE BUILDING THERAPY
     Dosage: 250 MG TWICE PER WEEK FOR 2 MONTHS
     Route: 030

REACTIONS (8)
  - Chest discomfort [Recovered/Resolved]
  - Aortic dissection [Recovered/Resolved]
  - Cardiac tamponade [Recovered/Resolved]
  - Drug abuse [Unknown]
  - Back pain [Recovered/Resolved]
  - Vascular graft complication [Recovered/Resolved]
  - Aortic valve incompetence [Recovered/Resolved]
  - Cardiogenic shock [Recovered/Resolved]
